FAERS Safety Report 18312816 (Version 12)
Quarter: 2021Q4

REPORT INFORMATION
  Report Type: Spontaneous
  Country: US (occurrence: US)
  Receive Date: 20200925
  Receipt Date: 20211004
  Transmission Date: 20220303
  Serious: Yes (Other)
  Sender: FDA-Public Use
  Company Number: US-GLAXOSMITHKLINE-US2020AMR188826

PATIENT
  Sex: Female

DRUGS (12)
  1. ZEJULA [Suspect]
     Active Substance: NIRAPARIB
     Indication: Ovarian cancer
     Dosage: 200 MG, QD
     Route: 048
     Dates: start: 20200909
  2. ZEJULA [Suspect]
     Active Substance: NIRAPARIB
     Dosage: 100 MG, QD
     Dates: start: 20200910
  3. ZEJULA [Suspect]
     Active Substance: NIRAPARIB
     Dosage: 200 MG, QD
     Route: 048
  4. ZEJULA [Suspect]
     Active Substance: NIRAPARIB
     Dosage: UNK (100MG QD ALT WITH 200MG QD)
  5. ZEJULA [Suspect]
     Active Substance: NIRAPARIB
     Dosage: UNK (100MG BY MOUTH ALTERNATING WITH 200MG BY MOUTH Q.O.D)
     Route: 048
  6. ZEJULA [Suspect]
     Active Substance: NIRAPARIB
     Dosage: UNK (100MG, ALTERNATING WITH 200MG EVERY OTHER DAY)
     Dates: end: 20210328
  7. ZEJULA [Suspect]
     Active Substance: NIRAPARIB
     Dosage: UNK (100MG, ALTERNATING WITH 200MG EVERY OTHER DAY)
     Dates: start: 20210416
  8. ZEJULA [Suspect]
     Active Substance: NIRAPARIB
     Dosage: UNK (100MG, ALTERNATING WITH 200MG EVERY OTHER DAY)
     Dates: start: 2021
  9. ZEJULA [Suspect]
     Active Substance: NIRAPARIB
     Dosage: 100 MG, BID
     Route: 048
  10. ZEJULA [Suspect]
     Active Substance: NIRAPARIB
     Dosage: UNK (100MG ALTERNATING WITH 200MG EVERY OTHER DAY)
  11. COVID-19 VACCINE NOS [Suspect]
     Active Substance: COVID-19 VACCINE NOS
     Indication: COVID-19 prophylaxis
     Dosage: UNK
  12. COVID-19 VACCINE NOS [Suspect]
     Active Substance: COVID-19 VACCINE NOS
     Dosage: UNK

REACTIONS (27)
  - Renal impairment [Not Recovered/Not Resolved]
  - Headache [Unknown]
  - Hypertension [Unknown]
  - Nausea [Unknown]
  - Palpitations [Not Recovered/Not Resolved]
  - Asthenia [Unknown]
  - Fatigue [Not Recovered/Not Resolved]
  - Decreased appetite [Not Recovered/Not Resolved]
  - Pain in extremity [Unknown]
  - Diarrhoea [Not Recovered/Not Resolved]
  - Dehydration [Not Recovered/Not Resolved]
  - Protein total decreased [Unknown]
  - Cough [Not Recovered/Not Resolved]
  - Seasonal allergy [Recovering/Resolving]
  - Weight decreased [Unknown]
  - Peripheral swelling [Recovered/Resolved]
  - Blood pressure systolic increased [Unknown]
  - Renal cyst [Unknown]
  - Decreased activity [Unknown]
  - Emotional disorder [Unknown]
  - Feeling abnormal [Unknown]
  - Lung disorder [Unknown]
  - Positron emission tomogram abnormal [Unknown]
  - Constipation [Unknown]
  - Intentional underdose [Unknown]
  - Product use issue [Unknown]
  - Product dose omission issue [Unknown]
